FAERS Safety Report 25265276 (Version 1)
Quarter: 2025Q2

REPORT INFORMATION
  Report Type: Report from Study
  Country: US (occurrence: US)
  Receive Date: 20250502
  Receipt Date: 20250502
  Transmission Date: 20250716
  Serious: Yes (Other)
  Sender: ABBVIE
  Company Number: US-ABBVIE-6227880

PATIENT
  Age: 12 Year
  Sex: Female

DRUGS (7)
  1. HUMIRA [Suspect]
     Active Substance: ADALIMUMAB
     Indication: Psoriasis
     Route: 058
     Dates: start: 20210423
  2. HUMIRA [Suspect]
     Active Substance: ADALIMUMAB
     Indication: Crohn^s disease
  3. VITAMIN D [Concomitant]
     Active Substance: VITAMIN D NOS
     Indication: Product used for unknown indication
  4. IRON [Concomitant]
     Active Substance: IRON
     Indication: Product used for unknown indication
  5. LACTASE [Concomitant]
     Active Substance: LACTASE
     Indication: Product used for unknown indication
  6. EPIPEN [Concomitant]
     Active Substance: EPINEPHRINE
     Indication: Product used for unknown indication
  7. STELARA [Suspect]
     Active Substance: USTEKINUMAB
     Indication: Product used for unknown indication

REACTIONS (12)
  - Anaphylactic reaction [Recovered/Resolved]
  - Blood test abnormal [Unknown]
  - Ulcer haemorrhage [Unknown]
  - Anaemia [Unknown]
  - Fatigue [Unknown]
  - Drug ineffective [Unknown]
  - Condition aggravated [Unknown]
  - Dyspnoea [Unknown]
  - Internal haemorrhage [Unknown]
  - Drug level abnormal [Unknown]
  - Laboratory test abnormal [Unknown]
  - Psoriasis [Unknown]

NARRATIVE: CASE EVENT DATE: 20250301
